FAERS Safety Report 13647238 (Version 1)
Quarter: 2017Q2

REPORT INFORMATION
  Report Type: Spontaneous
  Country: US (occurrence: US)
  Receive Date: 20170613
  Receipt Date: 20170613
  Transmission Date: 20170830
  Serious: Yes (Other)
  Sender: FDA-Public Use
  Company Number: None

PATIENT
  Age: 66 Year
  Sex: Female
  Weight: 84.6 kg

DRUGS (8)
  1. ATTENOLOL [Concomitant]
  2. PATADAY [Concomitant]
     Active Substance: OLOPATADINE HYDROCHLORIDE
  3. NABUMETONE. [Concomitant]
     Active Substance: NABUMETONE
  4. VOLTAREN [Concomitant]
     Active Substance: DICLOFENAC SODIUM
  5. COLGATE PREVIDENT VARNISH [Suspect]
     Active Substance: SODIUM FLUORIDE
     Indication: SENSITIVITY OF TEETH
     Dosage: APPLIED BY DENTAL HYGIENIST?
     Dates: start: 20170613, end: 20170613
  6. ALDACTONE [Concomitant]
     Active Substance: SPIRONOLACTONE
  7. OPHENADRINE [Concomitant]
  8. YUVAFEM [Concomitant]
     Active Substance: ESTRADIOL HEMIHYDRATE

REACTIONS (3)
  - Oral discomfort [None]
  - Lip swelling [None]
  - Mouth swelling [None]

NARRATIVE: CASE EVENT DATE: 20170613
